FAERS Safety Report 10381119 (Version 1)
Quarter: 2014Q1

REPORT INFORMATION
  Report Type: Spontaneous
  Country: US (occurrence: None)
  Receive Date: 20140306
  Receipt Date: 20140306
  Transmission Date: 20141002
  Serious: Yes (Other)
  Sender: FDA-Public Use
  Company Number: 163-21880-13030584

PATIENT
  Age: 89 Year
  Sex: Male

DRUGS (8)
  1. REVLIMID (LENALIDOMIDE) (15 MILLIGRAM, CAPSULES) [Suspect]
     Indication: PLASMA CELL MYELOMA
     Dosage: 15 MG, 21 IN 28 D, PO
     Route: 048
     Dates: start: 20120914, end: 20130312
  2. DEXAMETHASONE (DEXAMETHASONE) [Concomitant]
  3. LORAZEPAM (LORAZEPAM) [Concomitant]
  4. ISOSORBIDE (ISOSORBIDE) [Concomitant]
  5. ASA (ACETYLSALICYLIC ACID) [Concomitant]
  6. OXYCPDPME (OXYCODONE) [Concomitant]
  7. MORPHINE SULPHATE (MORPHINE SULFATE) [Concomitant]
  8. SENNA-S (SENNA) [Concomitant]

REACTIONS (1)
  - Plasma cell myeloma [None]
